FAERS Safety Report 10744340 (Version 1)
Quarter: 2015Q1

REPORT INFORMATION
  Report Type: Spontaneous
  Country: US (occurrence: None)
  Receive Date: 20150126
  Receipt Date: 20150126
  Transmission Date: 20150721
  Serious: Yes (Life-Threatening)
  Sender: FDA-Public Use
  Company Number: None

PATIENT
  Age: 53 Year
  Sex: Female
  Weight: 46.27 kg

DRUGS (2)
  1. PROAIR HFA [Suspect]
     Active Substance: ALBUTEROL SULFATE
     Indication: BRONCHITIS
     Dosage: 2 PUFFS EVERY 4-6 HOURS INHALATION
     Route: 055
     Dates: start: 20150107, end: 20150124
  2. PROAIR HFA [Suspect]
     Active Substance: ALBUTEROL SULFATE
     Indication: DYSPNOEA
     Dosage: 2 PUFFS EVERY 4-6 HOURS INHALATION
     Route: 055
     Dates: start: 20150107, end: 20150124

REACTIONS (2)
  - Device ineffective [None]
  - Incorrect dose administered by device [None]

NARRATIVE: CASE EVENT DATE: 20150124
